FAERS Safety Report 7103701-X (Version None)
Quarter: 2010Q4

REPORT INFORMATION
  Report Type: 
  Country: None (occurrence: None)
  Receive Date: 20101115
  Receipt Date: 20080522
  Transmission Date: 20110411
  Serious: No
  Sender: FDA-Public Use
  Company Number: US-KINGPHARMUSA00001-K200800587

PATIENT
  Sex: Male

DRUGS (1)
  1. ALTACE [Suspect]
     Dosage: 2.5 MG, QD
     Route: 048

REACTIONS (1)
  - BLOOD PRESSURE INCREASED [None]
